FAERS Safety Report 8270779-X (Version None)
Quarter: 2012Q2

REPORT INFORMATION
  Report Type: 
  Country: None (occurrence: None)
  Receive Date: 20120410
  Receipt Date: 20120329
  Transmission Date: 20120825
  Serious: Yes (Death, Life-Threatening, Hospitalization)
  Sender: FDA-Public Use
  Company Number: CA-ROCHE-1049355

PATIENT
  Sex: Male
  Weight: 65 kg

DRUGS (10)
  1. NADOLOL [Concomitant]
  2. LASIX [Concomitant]
     Indication: OEDEMA PERIPHERAL
     Route: 048
     Dates: start: 20120215
  3. PEGASYS [Suspect]
     Indication: HEPATITIS C
     Route: 058
     Dates: start: 20111107, end: 20120313
  4. METFORMIN HCL [Concomitant]
  5. RIBAVIRIN [Suspect]
     Indication: HEPATITIS C
     Route: 048
     Dates: start: 20111107, end: 20120313
  6. EPREX [Concomitant]
     Indication: ANAEMIA
     Dosage: 40000 IU/ML
     Route: 058
     Dates: start: 20120223
  7. GLYBURIDE [Concomitant]
     Indication: DIABETES MELLITUS
     Route: 048
  8. SPIRONOLACTONE [Concomitant]
  9. VICTRELIS [Suspect]
     Indication: PRODUCT USED FOR UNKNOWN INDICATION
     Route: 048
     Dates: start: 20111212, end: 20120313
  10. DIAZEPAM [Concomitant]

REACTIONS (10)
  - ASCITES [None]
  - BLOOD GLUCOSE INCREASED [None]
  - MULTI-ORGAN FAILURE [None]
  - RENAL FAILURE [None]
  - SEPTIC SHOCK [None]
  - LOSS OF CONSCIOUSNESS [None]
  - HAEMOGLOBIN DECREASED [None]
  - KETOACIDOSIS [None]
  - ANAEMIA [None]
  - PLATELET COUNT DECREASED [None]
